FAERS Safety Report 7460195-2 (Version None)
Quarter: 2011Q2

REPORT INFORMATION
  Report Type: 
  Country: None (occurrence: None)
  Receive Date: 20110505
  Receipt Date: 20110421
  Transmission Date: 20111010
  Serious: Yes (Other)
  Sender: FDA-Public Use
  Company Number: US-ROCHE-773246

PATIENT
  Sex: Male

DRUGS (7)
  1. AVASTIN [Suspect]
     Dosage: START DATE: MORE THAN 2 YEARS AGO
     Route: 031
  2. DOXORUBICIN [Concomitant]
     Dates: start: 20090901, end: 20100101
  3. PREDNISOLONE [Concomitant]
     Dates: start: 20090901, end: 20100101
  4. LUCENTIS [Suspect]
     Indication: MACULAR OEDEMA
     Route: 031
  5. VINCRISTINE [Concomitant]
     Dates: start: 20090901, end: 20100101
  6. CYCLOPHOSPHAMIDE [Concomitant]
     Dates: start: 20090901, end: 20100101
  7. RITUXAN [Concomitant]
     Route: 065
     Dates: start: 20090901, end: 20100101

REACTIONS (3)
  - INJECTION SITE PAIN [None]
  - VISUAL IMPAIRMENT [None]
  - LYMPHOMA [None]
